FAERS Safety Report 12184034 (Version 2)
Quarter: 2016Q2

REPORT INFORMATION
  Report Type: Spontaneous
  Country: US (occurrence: US)
  Receive Date: 20160316
  Receipt Date: 20160412
  Transmission Date: 20160815
  Serious: No
  Sender: FDA-Public Use
  Company Number: US-ACTELION PHARMACEUTICALS US, INC.-A-US2016-132732

PATIENT
  Age: 60 Year
  Sex: Female

DRUGS (13)
  1. FUROSEMIDE. [Concomitant]
     Active Substance: FUROSEMIDE
  2. OMEGA 3 [Concomitant]
     Active Substance: OMEGA-3 FATTY ACIDS
  3. OPSUMIT [Suspect]
     Active Substance: MACITENTAN
     Indication: PULMONARY ARTERIAL HYPERTENSION
     Dosage: 10 MG, UNK
     Route: 048
     Dates: start: 20151112
  4. ENALAPRIL [Concomitant]
     Active Substance: ENALAPRIL
  5. AMLODIPINE [Concomitant]
     Active Substance: AMLODIPINE BESYLATE
  6. TRAMADOL. [Concomitant]
     Active Substance: TRAMADOL
  7. VITAMIN C [Concomitant]
     Active Substance: ASCORBIC ACID
  8. PREDNISONE. [Concomitant]
     Active Substance: PREDNISONE
  9. VITAMIN B12 [Concomitant]
     Active Substance: CYANOCOBALAMIN
  10. ADCIRCA [Concomitant]
     Active Substance: TADALAFIL
  11. VITAMIN D3 [Concomitant]
     Active Substance: CHOLECALCIFEROL
  12. ASPIRIN. [Concomitant]
     Active Substance: ASPIRIN
  13. ELIQUIS [Concomitant]
     Active Substance: APIXABAN

REACTIONS (7)
  - Vitreous floaters [Unknown]
  - Pruritus [Unknown]
  - Peripheral swelling [Unknown]
  - Vein disorder [Unknown]
  - Pain [Recovered/Resolved]
  - Influenza like illness [Unknown]
  - Skin irritation [Unknown]

NARRATIVE: CASE EVENT DATE: 20151130
